FAERS Safety Report 10977565 (Version 2)
Quarter: 2015Q2

REPORT INFORMATION
  Report Type: Spontaneous
  Country: JP (occurrence: None)
  Receive Date: 20150330
  Receipt Date: 20150409
  Transmission Date: 20150821
  Serious: Yes (Other)
  Sender: FDA-Public Use
  Company Number: 2015-000553

PATIENT
  Age: 81 Year
  Sex: Female

DRUGS (3)
  1. ACTONEL [Suspect]
     Active Substance: RISEDRONATE SODIUM
     Route: 048
     Dates: start: 200803, end: 201105
  2. MINODRONIC ACID (MINODRONIC ACID) [Suspect]
     Active Substance: MINODRONIC ACID
     Dosage: UNKNOWN
     Dates: start: 201210
  3. BENET (RISEDRONATE SODIUM) TABLET, UNKMG [Suspect]
     Active Substance: RISEDRONATE SODIUM
     Dosage: UNKNOWN

REACTIONS (6)
  - Pain in extremity [None]
  - Back pain [None]
  - Spinal fracture [None]
  - Atypical femur fracture [None]
  - Condition aggravated [None]
  - Fall [None]

NARRATIVE: CASE EVENT DATE: 201102
